FAERS Safety Report 24318339 (Version 3)
Quarter: 2025Q4

REPORT INFORMATION
  Report Type: Spontaneous
  Country: JP (occurrence: JP)
  Receive Date: 20240913
  Receipt Date: 20251223
  Transmission Date: 20260118
  Serious: Yes (Hospitalization, Other)
  Sender: ELI LILLY AND COMPANY
  Company Number: JP-ELI_LILLY_AND_COMPANY-JP202409002472

PATIENT
  Age: 60 Year
  Sex: Female
  Weight: 63.2 kg

DRUGS (15)
  1. CYRAMZA [Suspect]
     Active Substance: RAMUCIRUMAB
     Indication: Colon cancer stage IV
     Dosage: 520 MG, CYCLICAL
     Route: 041
     Dates: start: 20240620, end: 20240620
  2. IRINOTECAN [Concomitant]
     Active Substance: IRINOTECAN
     Dosage: 260 MG, CYCLICAL
     Route: 041
     Dates: start: 20240620, end: 20240620
  3. FLUOROURACIL [Concomitant]
     Active Substance: FLUOROURACIL
     Dosage: 690 MG, CYCLICAL
     Route: 041
     Dates: start: 20240620, end: 20240620
  4. LEVOLEUCOVORIN CALCIUM [Concomitant]
     Active Substance: LEVOLEUCOVORIN CALCIUM
     Dosage: 345 MG, CYCLICAL
     Route: 041
     Dates: start: 20240620, end: 20240620
  5. POLAMIN [Concomitant]
  6. PALONOSETRON [Concomitant]
     Active Substance: PALONOSETRON
     Dosage: 0.75 MG, CYCLICAL
     Route: 041
     Dates: start: 20240620, end: 20240620
  7. DEXAMETHASONE SODIUM PHOSPHATE [Concomitant]
     Active Substance: DEXAMETHASONE SODIUM PHOSPHATE
     Dosage: 9.9 MG, CYCLICAL
     Route: 041
     Dates: start: 20240620, end: 20240620
  8. AMLODIPINE BESYLATE [Concomitant]
     Active Substance: AMLODIPINE BESYLATE
  9. OLOPATADINE HYDROCHLORIDE [Concomitant]
     Active Substance: OLOPATADINE HYDROCHLORIDE
  10. MAGNESIUM OXIDE [Concomitant]
     Active Substance: MAGNESIUM OXIDE
  11. MINOCYCLINE HYDROCHLORIDE [Concomitant]
     Active Substance: MINOCYCLINE HYDROCHLORIDE
  12. CLOBETASOL PROPIONATE [Concomitant]
     Active Substance: CLOBETASOL PROPIONATE
  13. CP-PRAZO [Concomitant]
  14. LOPERAMIDE HYDROCHLORIDE [Concomitant]
     Active Substance: LOPERAMIDE HYDROCHLORIDE
  15. BUTYLSCOPOLAMINE BROMIDE [Concomitant]
     Active Substance: BUTYLSCOPOLAMINE BROMIDE

REACTIONS (2)
  - Nephrotic syndrome [Recovering/Resolving]
  - Myelosuppression [Recovering/Resolving]

NARRATIVE: CASE EVENT DATE: 20240627
